FAERS Safety Report 6268413-3 (Version None)
Quarter: 2009Q3

REPORT INFORMATION
  Report Type: 
  Country: None (occurrence: None)
  Receive Date: 20090713
  Receipt Date: 20090713
  Transmission Date: 20100115
  Serious: Yes (Life-Threatening)
  Sender: FDA-Public Use
  Company Number: None

PATIENT
  Age: 58 Year
  Sex: Male
  Weight: 55.2 kg

DRUGS (1)
  1. IODIXANOL [Suspect]
     Indication: INFECTION
     Dosage: 120 ML ONCE IV
     Route: 042
     Dates: start: 20090707, end: 20090707

REACTIONS (3)
  - BRADYCARDIA [None]
  - HYPOTENSION [None]
  - NO THERAPEUTIC RESPONSE [None]
